FAERS Safety Report 23951851 (Version 2)
Quarter: 2024Q3

REPORT INFORMATION
  Report Type: Spontaneous
  Country: SK (occurrence: SK)
  Receive Date: 20240607
  Receipt Date: 20240906
  Transmission Date: 20241016
  Serious: Yes (Hospitalization, Other)
  Sender: BRISTOL MYERS SQUIBB
  Company Number: SK-BRISTOL-MYERS SQUIBB COMPANY-2024-086704

PATIENT
  Age: 83 Year
  Sex: Male

DRUGS (2)
  1. NIVOLUMAB [Suspect]
     Active Substance: NIVOLUMAB
     Indication: Malignant melanoma
     Dosage: 1 ST LINE THERAPY (36 CYCLES)
     Dates: start: 201704, end: 201810
  2. NIVOLUMAB [Suspect]
     Active Substance: NIVOLUMAB
     Dosage: 110 CYCLES
     Dates: start: 201811, end: 202112

REACTIONS (8)
  - Malignant neoplasm oligoprogression [Unknown]
  - Metastases to pleura [Unknown]
  - Pancreatic steatosis [Unknown]
  - Hepatic steatosis [Unknown]
  - Intestinal metastasis [Unknown]
  - Angina pectoris [Unknown]
  - Acute myocardial infarction [Unknown]
  - Metastases to prostate [Unknown]

NARRATIVE: CASE EVENT DATE: 20170401
